FAERS Safety Report 5627483-3 (Version None)
Quarter: 2008Q1

REPORT INFORMATION
  Report Type: 
  Country: None (occurrence: None)
  Receive Date: 20080215
  Receipt Date: 20080204
  Transmission Date: 20080703
  Serious: Yes (Death, Life-Threatening)
  Sender: FDA-Public Use
  Company Number: JP-WYE-H02585508

PATIENT
  Age: 76 Year
  Sex: Female

DRUGS (11)
  1. AMIODARONE HCL [Suspect]
     Dosage: DOSE UNKNOWN, 2 TABLETS DAILY
     Route: 048
     Dates: start: 20080126, end: 20080126
  2. AMIODARONE HCL [Suspect]
     Dosage: DOSE UNKNOWN, 3 TABLETS DAILY
     Route: 048
     Dates: start: 20080127, end: 20080127
  3. AMIODARONE HCL [Suspect]
     Dosage: DOSE UNKNOWN, 1 TABLET DAILY
     Route: 048
     Dates: start: 20080128, end: 20080131
  4. ALDACTONE [Concomitant]
     Dosage: 1 DOSE FORM (UNSPECIFIED), FREQUENCY UNKNOWN
     Route: 048
  5. ENALAPRIL MALEATE [Concomitant]
     Dosage: 0.5 DOSE FORM, FREQUENCY UNKNOWN
     Route: 048
  6. MEDICON [Concomitant]
     Dosage: 3 DOSE FORMS (UNSPECIFIED), FREQUENCY UNSPECIFIED
     Route: 048
  7. MAINTATE [Concomitant]
     Dosage: 1 DOSE FORM (UNSPECIFIED), FREQUENCY UNKNOWN
     Route: 048
  8. TAKEPRON [Concomitant]
     Dosage: 1 DOSE FORM (UNSPECIFIED), FREQUENCY UNKNOWN
     Route: 048
  9. MUCODYNE [Concomitant]
     Dosage: 3 DOSE FORMS (UNSPECIFIED), FREQUENCY UNKNOWN
     Route: 048
  10. TORSEMIDE [Concomitant]
     Dosage: 2 DOSE FORMS (UNSPECIFIED), FREQUENCY UNKNOWN
     Route: 048
  11. ALOSITOL [Concomitant]
     Dosage: 0.5 DOSE FORM, FREQUENCY UNKNOWN
     Route: 048

REACTIONS (2)
  - DISSEMINATED INTRAVASCULAR COAGULATION [None]
  - HEPATITIS FULMINANT [None]
